FAERS Safety Report 4509368-9 (Version None)
Quarter: 2004Q4

REPORT INFORMATION
  Report Type: 
  Country: None (occurrence: None)
  Receive Date: 20041025
  Receipt Date: 20040812
  Transmission Date: 20050328
  Serious: Yes (Other)
  Sender: FDA-Public Use
  Company Number: US-JNJFOC-20040804848

PATIENT
  Age: 70 Year
  Sex: Male
  Weight: 88.905 kg

DRUGS (3)
  1. REMICADE [Suspect]
     Indication: RHEUMATOID ARTHRITIS
     Dosage: 4 MG/KG
     Dates: start: 20040708
  2. METHOTREXATE [Concomitant]
  3. PRILOSEC [Concomitant]

REACTIONS (2)
  - CELLULITIS [None]
  - PHARYNGITIS [None]
